FAERS Safety Report 6772321-9 (Version None)
Quarter: 2010Q2

REPORT INFORMATION
  Report Type: 
  Country: None (occurrence: None)
  Receive Date: 20100616
  Receipt Date: 20100421
  Transmission Date: 20101027
  Serious: No
  Sender: FDA-Public Use
  Company Number: US-ASTRAZENECA-2010SE09531

PATIENT
  Age: 71 Year
  Sex: Male
  Weight: 72.6 kg

DRUGS (2)
  1. PULMICORT RESPULES [Suspect]
     Indication: NASAL POLYPS
     Route: 055
     Dates: start: 20090101
  2. ADVAIR DISKUS 100/50 [Suspect]
     Route: 065

REACTIONS (11)
  - CHEST DISCOMFORT [None]
  - COUGH [None]
  - INSOMNIA [None]
  - LIP SWELLING [None]
  - NASOPHARYNGITIS [None]
  - NERVOUSNESS [None]
  - OEDEMA PERIPHERAL [None]
  - POSTNASAL DRIP [None]
  - WEIGHT DECREASED [None]
  - WHEEZING [None]
  - WRONG TECHNIQUE IN DRUG USAGE PROCESS [None]
